FAERS Safety Report 5472597-4 (Version None)
Quarter: 2007Q4

REPORT INFORMATION
  Report Type: 
  Country: None (occurrence: None)
  Receive Date: 20071001
  Receipt Date: 20060727
  Transmission Date: 20080405
  Serious: No
  Sender: FDA-Public Use
  Company Number: US-ASTRAZENECA-2006UW15172

PATIENT
  Age: 57 Year
  Sex: Female
  Weight: 77.1 kg

DRUGS (5)
  1. ARIMIDEX [Suspect]
     Indication: PROPHYLAXIS
     Route: 048
     Dates: start: 20060721
  2. AVAPRO [Concomitant]
  3. NEXIUM [Concomitant]
     Route: 048
  4. SYNTHROID [Concomitant]
  5. ATIVAN [Concomitant]

REACTIONS (2)
  - PRURITUS [None]
  - SWELLING FACE [None]
